FAERS Safety Report 8785432 (Version 1)
Quarter: 2012Q4

REPORT INFORMATION
  Report Type: 
  Country: DE (occurrence: FR)
  Receive Date: 20120914
  Receipt Date: 20120914
  Transmission Date: 20130627
  Serious: Yes (Hospitalization)
  Sender: FDA-Public Use
  Company Number: FR-BRISTOL-MYERS SQUIBB COMPANY-16959140

PATIENT
  Age: 72 Year
  Sex: Male

DRUGS (5)
  1. ERBITUX [Suspect]
     Indication: COLORECTAL CANCER
     Dates: end: 20101117
  2. IRINOTECAN [Suspect]
     Indication: COLORECTAL CANCER
     Dates: end: 20101117
  3. FOLINIC ACID [Suspect]
     Indication: COLORECTAL CANCER
     Dosage: Unk-17Nov10
1Dec10-Ong
  4. 5-FLUOROURACIL [Suspect]
     Indication: COLORECTAL CANCER
     Dosage: Unk-17Nov10
1Dec10-Ong
  5. OXALIPLATIN [Suspect]
     Indication: COLORECTAL CANCER
     Dates: start: 20101201

REACTIONS (2)
  - Pneumatosis intestinalis [Recovering/Resolving]
  - Skin toxicity [Unknown]
